FAERS Safety Report 4547423-8 (Version None)
Quarter: 2005Q1

REPORT INFORMATION
  Report Type: 
  Country: None (occurrence: None)
  Receive Date: 20050107
  Receipt Date: 20040907
  Transmission Date: 20050727
  Serious: Yes (Death, Hospitalization)
  Sender: FDA-Public Use
  Company Number: PHBS2004JP11893

PATIENT
  Age: 76 Year
  Sex: Male

DRUGS (1)
  1. TEGRETOL [Suspect]
     Route: 065
     Dates: start: 20040301

REACTIONS (1)
  - INTERSTITIAL LUNG DISEASE [None]
